FAERS Safety Report 11337365 (Version 1)
Quarter: 2015Q3

REPORT INFORMATION
  Report Type: Spontaneous
  Country: US (occurrence: US)
  Receive Date: 20150803
  Receipt Date: 20150803
  Transmission Date: 20151125
  Serious: Yes (Hospitalization)
  Sender: FDA-Public Use
  Company Number: US-ELI_LILLY_AND_COMPANY-US200803002936

PATIENT
  Age: 45 Year
  Sex: Male
  Weight: 88.44 kg

DRUGS (1)
  1. ZYPREXA [Suspect]
     Active Substance: OLANZAPINE
     Dates: start: 19971027

REACTIONS (6)
  - Blood cholesterol [Unknown]
  - Biliary tract disorder [Unknown]
  - Hypertension [Unknown]
  - Metabolic disorder [Unknown]
  - Blood glucose increased [Unknown]
  - Diabetes mellitus [Not Recovered/Not Resolved]

NARRATIVE: CASE EVENT DATE: 20030112
